FAERS Safety Report 12756080 (Version 1)
Quarter: 2016Q3

REPORT INFORMATION
  Report Type: Spontaneous
  Country: US (occurrence: US)
  Receive Date: 20160916
  Receipt Date: 20160916
  Transmission Date: 20161109
  Serious: No
  Sender: FDA-Public Use
  Company Number: US-PFIZER INC-2016436109

PATIENT
  Age: 40 Year
  Sex: Male
  Weight: 90 kg

DRUGS (5)
  1. MYDOCALM [Concomitant]
     Active Substance: TOLPERISONE
     Indication: MUSCLE RELAXANT THERAPY
     Dosage: UNK
     Dates: start: 2016
  2. ADVIL PM [Suspect]
     Active Substance: DIPHENHYDRAMINE CITRATE\IBUPROFEN
     Indication: SLEEP DISORDER
     Dosage: 1 DF, DAILY
  3. BLOKIUM B12 [Concomitant]
     Indication: NEURALGIA
     Dosage: UNK
     Dates: start: 2016
  4. OMEPRAZOLE. [Concomitant]
     Active Substance: OMEPRAZOLE
     Indication: GASTRIC PH DECREASED
     Dosage: UNK
  5. ADVIL PM [Suspect]
     Active Substance: DIPHENHYDRAMINE CITRATE\IBUPROFEN
     Indication: TOOTHACHE
     Dosage: 2 DF, DAILY
     Dates: start: 2016

REACTIONS (1)
  - Drug ineffective [Unknown]
